FAERS Safety Report 22533352 (Version 2)
Quarter: 2023Q2

REPORT INFORMATION
  Report Type: Report from Study
  Country: BR (occurrence: BR)
  Receive Date: 20230608
  Receipt Date: 20230613
  Transmission Date: 20230721
  Serious: Yes (Disabling)
  Sender: FDA-Public Use
  Company Number: BR-ABBVIE-5184492

PATIENT
  Age: 54 Year
  Sex: Female
  Weight: 52 kg

DRUGS (4)
  1. RINVOQ [Suspect]
     Active Substance: UPADACITINIB
     Indication: Rheumatoid arthritis
     Dosage: 1 DOSAGE FORMS
     Route: 048
     Dates: start: 20210804
  2. NIMESULIDE [Concomitant]
     Active Substance: NIMESULIDE
     Indication: Inflammation
     Dosage: 1 TABLET
     Route: 048
  3. FOLIC ACID [Concomitant]
     Active Substance: FOLIC ACID
     Indication: Product used for unknown indication
  4. PREDNISOLONE [Concomitant]
     Active Substance: PREDNISOLONE
     Indication: Product used for unknown indication
     Route: 048

REACTIONS (19)
  - Gait inability [Not Recovered/Not Resolved]
  - Muscle atrophy [Not Recovered/Not Resolved]
  - Joint swelling [Not Recovered/Not Resolved]
  - Bone pain [Not Recovered/Not Resolved]
  - Pain in extremity [Unknown]
  - Pain [Not Recovered/Not Resolved]
  - Joint range of motion decreased [Not Recovered/Not Resolved]
  - Chikungunya virus infection [Unknown]
  - Loss of personal independence in daily activities [Not Recovered/Not Resolved]
  - Neck pain [Not Recovered/Not Resolved]
  - Rheumatoid arthritis [Unknown]
  - Weight decreased [Not Recovered/Not Resolved]
  - Renal disorder [Unknown]
  - Joint range of motion decreased [Not Recovered/Not Resolved]
  - Skin mass [Not Recovered/Not Resolved]
  - Spinal pain [Unknown]
  - Pain in jaw [Not Recovered/Not Resolved]
  - Musculoskeletal chest pain [Not Recovered/Not Resolved]
  - Arthralgia [Not Recovered/Not Resolved]

NARRATIVE: CASE EVENT DATE: 20221001
